FAERS Safety Report 5754817-1 (Version None)
Quarter: 2008Q2

REPORT INFORMATION
  Report Type: 
  Country: None (occurrence: None)
  Receive Date: 20080527
  Receipt Date: 20080521
  Transmission Date: 20081010
  Serious: Yes (Other)
  Sender: FDA-Public Use
  Company Number: 2007SP018092

PATIENT
  Age: 53 Year
  Sex: Male
  Weight: 56 kg

DRUGS (12)
  1. TEMODAL [Suspect]
     Indication: OLIGODENDROGLIOMA
     Dosage: SEE IMAGE
     Route: 048
     Dates: start: 20061013, end: 20061017
  2. TEMODAL [Suspect]
     Indication: OLIGODENDROGLIOMA
     Dosage: SEE IMAGE
     Route: 048
     Dates: start: 20061110, end: 20061114
  3. TEMODAL [Suspect]
     Indication: OLIGODENDROGLIOMA
     Dosage: SEE IMAGE
     Route: 048
     Dates: start: 20061208, end: 20061212
  4. TEMODAL [Suspect]
     Indication: OLIGODENDROGLIOMA
     Dosage: SEE IMAGE
     Route: 048
     Dates: start: 20070105, end: 20070109
  5. TEMODAL [Suspect]
     Indication: OLIGODENDROGLIOMA
     Dosage: SEE IMAGE
     Route: 048
     Dates: start: 20070213, end: 20070217
  6. TEMODAL [Suspect]
     Indication: OLIGODENDROGLIOMA
     Dosage: SEE IMAGE
     Route: 048
     Dates: start: 20070313, end: 20070317
  7. PHENYTOIN [Suspect]
     Indication: DRUG USE FOR UNKNOWN INDICATION
  8. UNASYN-S (UNACID /00917901/) [Suspect]
     Indication: DRUG USE FOR UNKNOWN INDICATION
  9. DECADRON [Suspect]
     Indication: DRUG USE FOR UNKNOWN INDICATION
  10. EXCEGRAN [Concomitant]
  11. MYSTAN [Concomitant]
  12. NASEA-OD [Concomitant]

REACTIONS (1)
  - HEPATIC FUNCTION ABNORMAL [None]
